FAERS Safety Report 16364664 (Version 3)
Quarter: 2019Q3

REPORT INFORMATION
  Report Type: Spontaneous
  Country: US (occurrence: US)
  Receive Date: 20190529
  Receipt Date: 20190926
  Transmission Date: 20191004
  Serious: No
  Sender: FDA-Public Use
  Company Number: US-ELI_LILLY_AND_COMPANY-US201905012824

PATIENT
  Sex: Male

DRUGS (1)
  1. TRULICITY [Suspect]
     Active Substance: DULAGLUTIDE
     Indication: GLYCOSYLATED HAEMOGLOBIN INCREASED
     Dosage: UNK UNK, UNKNOWN
     Route: 065

REACTIONS (11)
  - Swollen tongue [Recovered/Resolved]
  - Off label use [Unknown]
  - Drug ineffective [Recovered/Resolved]
  - Dry mouth [Recovered/Resolved]
  - Ageusia [Recovered/Resolved]
  - Decreased appetite [Unknown]
  - Blood glucose increased [Unknown]
  - Weight decreased [Recovered/Resolved]
  - Taste disorder [Recovered/Resolved]
  - Mouth swelling [Recovered/Resolved]
  - Glycosylated haemoglobin increased [Recovered/Resolved]
